FAERS Safety Report 4994255-2 (Version None)
Quarter: 2006Q2

REPORT INFORMATION
  Report Type: 
  Country: None (occurrence: None)
  Receive Date: 20060503
  Receipt Date: 20060417
  Transmission Date: 20061013
  Serious: Yes (Death, Hospitalization)
  Sender: FDA-Public Use
  Company Number: DSA_70893_2006

PATIENT
  Age: 5 Month
  Sex: Female

DRUGS (1)
  1. METHADONE HCL [Suspect]
     Dosage: 10 MG PO
     Route: 048

REACTIONS (11)
  - CARDIAC DISORDER [None]
  - CIRCULATORY COLLAPSE [None]
  - CONVULSION [None]
  - DRUG EXPOSURE DURING PREGNANCY [None]
  - DRUG WITHDRAWAL SYNDROME NEONATAL [None]
  - HYPOTENSION [None]
  - INTRACRANIAL PRESSURE INCREASED [None]
  - MIOSIS [None]
  - OVERDOSE [None]
  - RESPIRATORY DEPRESSION [None]
  - STUPOR [None]
